FAERS Safety Report 6439174-X (Version None)
Quarter: 2009Q4

REPORT INFORMATION
  Report Type: 
  Country: None (occurrence: None)
  Receive Date: 20091113
  Receipt Date: 20091110
  Transmission Date: 20100525
  Serious: Yes (Other)
  Sender: FDA-Public Use
  Company Number: US-BRISTOL-MYERS SQUIBB COMPANY-14853022

PATIENT
  Age: 73 Year
  Sex: Female

DRUGS (1)
  1. METFORMIN HCL [Suspect]

REACTIONS (3)
  - BLOOD PRESSURE DECREASED [None]
  - CHEST PAIN [None]
  - LOSS OF CONSCIOUSNESS [None]
